FAERS Safety Report 12781546 (Version 1)
Quarter: 2016Q3

REPORT INFORMATION
  Report Type: Spontaneous
  Country: US (occurrence: US)
  Receive Date: 20160926
  Receipt Date: 20160926
  Transmission Date: 20161109
  Serious: No
  Sender: FDA-Public Use
  Company Number: US-ALLERGAN-1655150US

PATIENT
  Age: 65 Year
  Sex: Female

DRUGS (2)
  1. CARAFATE [Suspect]
     Active Substance: SUCRALFATE
     Dosage: 10 ML, UNK
     Route: 048
     Dates: start: 201601
  2. CARAFATE [Suspect]
     Active Substance: SUCRALFATE
     Indication: GASTROOESOPHAGEAL REFLUX DISEASE
     Dosage: 10 UNK, UNK
     Route: 048
     Dates: start: 201506, end: 2015

REACTIONS (4)
  - Product difficult to swallow [Unknown]
  - Throat irritation [Recovered/Resolved]
  - Product physical consistency issue [Unknown]
  - Off label use [Unknown]

NARRATIVE: CASE EVENT DATE: 201601
